FAERS Safety Report 6670682-2 (Version None)
Quarter: 2010Q2

REPORT INFORMATION
  Report Type: 
  Country: None (occurrence: None)
  Receive Date: 20100407
  Receipt Date: 20100326
  Transmission Date: 20101027
  Serious: Yes (Other)
  Sender: FDA-Public Use
  Company Number: US-JNJFOC-20100308836

PATIENT
  Sex: Female
  Weight: 52.16 kg

DRUGS (4)
  1. REMICADE [Suspect]
     Indication: CROHN'S DISEASE
     Route: 042
  2. REMICADE [Suspect]
     Route: 042
  3. VYTORIN [Concomitant]
     Indication: BLOOD CHOLESTEROL
  4. MIRTAZAPINE [Concomitant]
     Indication: ANTIDEPRESSANT THERAPY

REACTIONS (4)
  - ADHESION [None]
  - OBSTRUCTION [None]
  - PAIN IN EXTREMITY [None]
  - SURGERY [None]
